FAERS Safety Report 17389579 (Version 1)
Quarter: 2020Q1

REPORT INFORMATION
  Report Type: Spontaneous
  Country: US (occurrence: US)
  Receive Date: 20200123
  Receipt Date: 20200123
  Transmission Date: 20200409
  Serious: Yes (Hospitalization)
  Sender: FDA-Public Use
  Company Number: None

PATIENT
  Age: 62 Year
  Sex: Male

DRUGS (11)
  1. CELEXOXIB [Concomitant]
  2. FINASTERIDE. [Concomitant]
     Active Substance: FINASTERIDE
  3. FLUTICASONE. [Concomitant]
     Active Substance: FLUTICASONE
  4. AMOXICILLIN. [Concomitant]
     Active Substance: AMOXICILLIN
  5. FOLIC ACID. [Concomitant]
     Active Substance: FOLIC ACID
  6. LISINOPRIL. [Concomitant]
     Active Substance: LISINOPRIL
  7. METHOTREXATE. [Concomitant]
     Active Substance: METHOTREXATE
  8. TRAMADOL. [Concomitant]
     Active Substance: TRAMADOL
  9. ACTEMRA [Suspect]
     Active Substance: TOCILIZUMAB
     Indication: ENDOCRINE DISORDER
     Route: 058
     Dates: start: 20171229
  10. GABAPENTIN. [Concomitant]
     Active Substance: GABAPENTIN
  11. PREDNISONE. [Concomitant]
     Active Substance: PREDNISONE

REACTIONS (1)
  - Surgery [None]
